FAERS Safety Report 7615757-6 (Version None)
Quarter: 2011Q3

REPORT INFORMATION
  Report Type: 
  Country: None (occurrence: None)
  Receive Date: 20110715
  Receipt Date: 20110715
  Transmission Date: 20111222
  Serious: Yes (Other)
  Sender: FDA-Public Use
  Company Number: None

PATIENT
  Age: 62 Year
  Sex: Female

DRUGS (3)
  1. GABAPENTIN [Concomitant]
  2. REVLIMID [Suspect]
     Indication: MYELOFIBROSIS
     Dosage: REVLIMID 10 MG DAILY ORALLY
     Route: 048
     Dates: start: 20110303, end: 20110311
  3. LEVOTHROID [Concomitant]

REACTIONS (5)
  - HEADACHE [None]
  - ABASIA [None]
  - TREMOR [None]
  - REFUSAL OF TREATMENT BY PATIENT [None]
  - VISION BLURRED [None]
